FAERS Safety Report 5286810-X (Version None)
Quarter: 2007Q2

REPORT INFORMATION
  Report Type: 
  Country: None (occurrence: None)
  Receive Date: 20070404
  Receipt Date: 20070327
  Transmission Date: 20071010
  Serious: Yes (Death, Disabling)
  Sender: FDA-Public Use
  Company Number: JP-SHR-JP-2007-002046

PATIENT
  Age: 54 Year
  Sex: Female

DRUGS (2)
  1. FLUDARA [Suspect]
     Indication: CHRONIC LYMPHOCYTIC LEUKAEMIA
     Dosage: 6 COURSES
     Route: 042
     Dates: start: 20051101, end: 20060601
  2. RITUXAN [Suspect]
     Indication: CHRONIC LYMPHOCYTIC LEUKAEMIA
     Dosage: 6 COURSES
     Route: 042
     Dates: start: 20051101, end: 20060601

REACTIONS (5)
  - DYSPNOEA [None]
  - INFECTION [None]
  - OBLITERATIVE BRONCHIOLITIS [None]
  - PO2 DECREASED [None]
  - RESPIRATORY FAILURE [None]
